APPROVED DRUG PRODUCT: OLANZAPINE
Active Ingredient: OLANZAPINE
Strength: 10MG
Dosage Form/Route: TABLET, ORALLY DISINTEGRATING;ORAL
Application: A208146 | Product #002 | TE Code: AB
Applicant: HEC PHARM USA INC
Approved: Jul 2, 2018 | RLD: No | RS: No | Type: RX